FAERS Safety Report 4478509-4 (Version None)
Quarter: 2004Q4

REPORT INFORMATION
  Report Type: 
  Country: None (occurrence: None)
  Receive Date: 20041018
  Receipt Date: 20041007
  Transmission Date: 20050328
  Serious: No
  Sender: FDA-Public Use
  Company Number: 2004PK01676

PATIENT
  Age: 72 Year
  Sex: Female
  Weight: 70 kg

DRUGS (5)
  1. CRESTOR [Suspect]
     Dosage: 10 MG DAILY PO
     Route: 048
     Dates: start: 20040503, end: 20040913
  2. SELOKEN [Concomitant]
  3. DIASTABOL [Concomitant]
  4. OMACOR [Concomitant]
  5. EUTHYROX [Concomitant]

REACTIONS (4)
  - DEPRESSION [None]
  - HEADACHE [None]
  - MYALGIA [None]
  - NIGHTMARE [None]
